FAERS Safety Report 8537228-5 (Version None)
Quarter: 2012Q3

REPORT INFORMATION
  Report Type: 
  Country: None (occurrence: None)
  Receive Date: 20120725
  Receipt Date: 20120718
  Transmission Date: 20120928
  Serious: Yes (Hospitalization)
  Sender: FDA-Public Use
  Company Number: IE-ELI_LILLY_AND_COMPANY-IE201205006763

PATIENT
  Sex: Female
  Weight: 36 kg

DRUGS (4)
  1. STALEVO 100 [Concomitant]
  2. CALCICHEW-D3 FORTE [Concomitant]
  3. FORTEO [Suspect]
     Indication: OSTEOPOROSIS
     Dosage: 20 UG, QD
     Route: 058
     Dates: start: 20120419
  4. ENSURE PLUS [Concomitant]

REACTIONS (3)
  - HYPOVOLAEMIA [None]
  - PARKINSON'S DISEASE [None]
  - GASTRITIS [None]
